FAERS Safety Report 6573305-6 (Version None)
Quarter: 2010Q1

REPORT INFORMATION
  Report Type: 
  Country: None (occurrence: None)
  Receive Date: 20100208
  Receipt Date: 20100127
  Transmission Date: 20100710
  Serious: Yes (Other)
  Sender: FDA-Public Use
  Company Number: US-PFIZER INC-2010011780

PATIENT
  Sex: Female

DRUGS (1)
  1. NAVANE [Suspect]

REACTIONS (1)
  - LOSS OF CONSCIOUSNESS [None]
